FAERS Safety Report 4383593-2 (Version None)
Quarter: 2004Q2

REPORT INFORMATION
  Report Type: 
  Country: None (occurrence: None)
  Receive Date: 20040618
  Receipt Date: 20040610
  Transmission Date: 20050107
  Serious: Yes (Hospitalization)
  Sender: FDA-Public Use
  Company Number: ZANA001318

PATIENT
  Age: 77 Year
  Sex: Female

DRUGS (10)
  1. TIZANIDINE HCL [Suspect]
     Dosage: 18 MG DAILY ORAL
     Route: 048
  2. NOROXIN [Suspect]
     Dates: start: 20040516, end: 20040519
  3. LIORESAL [Concomitant]
  4. GLYBURIDE [Concomitant]
  5. METFORMIN HCL [Concomitant]
  6. SPASMO-URGENIN N (TROSPIUM CHLORIDE) [Concomitant]
  7. VALIUM [Concomitant]
  8. ASPIRIN [Concomitant]
  9. BLOPRESS (CANDESARTAN CILEXETIL) [Concomitant]
  10. BORAGE OIL (BORAGE OIL) [Concomitant]

REACTIONS (2)
  - DRUG INTERACTION [None]
  - HEPATITIS ACUTE [None]
